FAERS Safety Report 5337543-2 (Version None)
Quarter: 2007Q2

REPORT INFORMATION
  Report Type: 
  Country: None (occurrence: None)
  Receive Date: 20070524
  Receipt Date: 20070516
  Transmission Date: 20071010
  Serious: Yes (Hospitalization)
  Sender: FDA-Public Use
  Company Number: 2007SP001862

PATIENT
  Age: 34 Year
  Sex: Female
  Weight: 57 kg

DRUGS (3)
  1. LUNESTA [Suspect]
     Dosage: 6 MG; ORAL
     Route: 048
  2. INSULIN [Suspect]
     Dosage: INTRAMUSCULAR
     Route: 030
     Dates: start: 20070429
  3. CYMBALTA [Concomitant]

REACTIONS (2)
  - SOMNOLENCE [None]
  - SUICIDE ATTEMPT [None]
